FAERS Safety Report 7413174-5 (Version None)
Quarter: 2011Q2

REPORT INFORMATION
  Report Type: 
  Country: None (occurrence: None)
  Receive Date: 20110413
  Receipt Date: 20110408
  Transmission Date: 20111010
  Serious: Yes (Other)
  Sender: FDA-Public Use
  Company Number: US-PFIZER INC-2010167395

PATIENT
  Sex: Female

DRUGS (1)
  1. SOLU-CORTEF [Suspect]
     Indication: PAIN
     Dosage: 5 MG, 1X/DAY EVERY NIGHT
     Route: 030
     Dates: start: 20090101

REACTIONS (12)
  - TENDON INJURY [None]
  - JOINT INJURY [None]
  - PAIN [None]
  - FEELING HOT [None]
  - NEUROPATHY PERIPHERAL [None]
  - LIGAMENT RUPTURE [None]
  - ACTIVITIES OF DAILY LIVING IMPAIRED [None]
  - JOINT SWELLING [None]
  - ASTHENIA [None]
  - PYREXIA [None]
  - HYPERSENSITIVITY [None]
  - HYPOKINESIA [None]
